FAERS Safety Report 10871495 (Version 3)
Quarter: 2015Q1

REPORT INFORMATION
  Report Type: Spontaneous
  Country: JP (occurrence: None)
  Receive Date: 20150223
  Receipt Date: 20150320
  Transmission Date: 20150721
  Serious: Yes (Life-Threatening, Hospitalization)
  Sender: FDA-Public Use
  Company Number: ABR_02064_2015

PATIENT
  Age: 43 Year
  Sex: Male

DRUGS (4)
  1. GLIADEL [Suspect]
     Active Substance: CARMUSTINE
     Indication: ANAPLASTIC ASTROCYTOMA
     Dosage: (8 DF 1X INTRACEREBRAL)
     Dates: start: 20140724
  2. NIDRAN [Concomitant]
     Active Substance: NIMUSTINE
  3. TEMODAL [Concomitant]
     Active Substance: TEMOZOLOMIDE
  4. KEPPRA [Concomitant]
     Active Substance: LEVETIRACETAM

REACTIONS (10)
  - Inflammation [None]
  - Implant site hypersensitivity [None]
  - Intracranial aneurysm [None]
  - Intraventricular haemorrhage [None]
  - Hypersensitivity [None]
  - Loss of consciousness [None]
  - Vascular pseudoaneurysm [None]
  - Cerebral haemorrhage [None]
  - Subarachnoid haemorrhage [None]
  - Implant site inflammation [None]

NARRATIVE: CASE EVENT DATE: 20150211
